FAERS Safety Report 17806174 (Version 1)
Quarter: 2020Q2

REPORT INFORMATION
  Report Type: Spontaneous
  Country: RU (occurrence: RU)
  Receive Date: 20200520
  Receipt Date: 20200520
  Transmission Date: 20200714
  Serious: Yes (Other)
  Sender: FDA-Public Use
  Company Number: RU-TEVA-2020-RU-1238049

PATIENT
  Age: 79 Year
  Sex: Female

DRUGS (3)
  1. SYMBICORT [Concomitant]
     Active Substance: BUDESONIDE\FORMOTEROL FUMARATE DIHYDRATE
     Indication: ASTHMA
     Dosage: DOSE 160 / 4.5 MCG, 2 TIMES A DAY
     Route: 055
  2. METFORMIN [Concomitant]
     Active Substance: METFORMIN HYDROCHLORIDE
     Indication: DIABETES MELLITUS
     Dosage: 1000 MILLIGRAM DAILY;
     Route: 048
  3. SUMAMED [Suspect]
     Active Substance: AZITHROMYCIN ANHYDROUS
     Indication: BRONCHITIS
     Dosage: 500 MILLIGRAM DAILY; THE DOSE THAT CAUSED THE AE - 500 / 500 MG
     Route: 048
     Dates: start: 20180412, end: 20180415

REACTIONS (1)
  - Stomatitis [Recovered/Resolved]

NARRATIVE: CASE EVENT DATE: 20180415
